FAERS Safety Report 25555575 (Version 2)
Quarter: 2025Q3

REPORT INFORMATION
  Report Type: Spontaneous
  Country: US (occurrence: US)
  Receive Date: 20250715
  Receipt Date: 20250819
  Transmission Date: 20251021
  Serious: Yes (Life-Threatening, Hospitalization)
  Sender: PFIZER
  Company Number: US-PFIZER INC-PV202500084237

PATIENT
  Age: 59 Year
  Sex: Female
  Weight: 42.177 kg

DRUGS (2)
  1. IBRANCE [Suspect]
     Active Substance: PALBOCICLIB
  2. LETROZOLE [Suspect]
     Active Substance: LETROZOLE

REACTIONS (7)
  - Abdominal pain upper [Not Recovered/Not Resolved]
  - Pulmonary oedema [Unknown]
  - Pericardial effusion [Unknown]
  - Pneumonia [Unknown]
  - Taste disorder [Unknown]
  - Decreased appetite [Unknown]
  - Abdominal discomfort [Unknown]
